FAERS Safety Report 7954802-5 (Version None)
Quarter: 2011Q4

REPORT INFORMATION
  Report Type: 
  Country: None (occurrence: None)
  Receive Date: 20111202
  Receipt Date: 20111124
  Transmission Date: 20120403
  Serious: Yes (Other)
  Sender: FDA-Public Use
  Company Number: US-ABBOTT-11P-163-0878793-00

PATIENT
  Age: 32 Year
  Sex: Male

DRUGS (4)
  1. NEXIUM [Concomitant]
     Indication: PRODUCT USED FOR UNKNOWN INDICATION
     Dosage: DAILY
  2. HUMIRA [Suspect]
     Indication: CROHN'S DISEASE
     Dates: start: 20070101, end: 20080101
  3. ASACOL [Concomitant]
     Indication: PRODUCT USED FOR UNKNOWN INDICATION
     Dosage: 6 TABS IN THE AM, 3 IN THE PM
  4. HUMIRA [Suspect]
     Dates: start: 20080101

REACTIONS (4)
  - CHOLANGITIS SCLEROSING [None]
  - DRUG EFFECT DECREASED [None]
  - PYREXIA [None]
  - BILE DUCT STENT INSERTION [None]
